FAERS Safety Report 8224775-9 (Version None)
Quarter: 2012Q1

REPORT INFORMATION
  Report Type: 
  Country: None (occurrence: None)
  Receive Date: 20120320
  Receipt Date: 20120320
  Transmission Date: 20120608
  Serious: No
  Sender: FDA-Public Use
  Company Number: None

PATIENT
  Sex: Male

DRUGS (1)
  1. VPRIV 4400 U IV [Suspect]
     Dosage: 4400 U Q 2 WK IV
     Route: 042
     Dates: start: 20120223, end: 20120314

REACTIONS (2)
  - CHEST PAIN [None]
  - INFUSION RELATED REACTION [None]
